FAERS Safety Report 17369013 (Version 12)
Quarter: 2022Q3

REPORT INFORMATION
  Report Type: Report from Study
  Country: AU (occurrence: AU)
  Receive Date: 20200204
  Receipt Date: 20220719
  Transmission Date: 20221027
  Serious: Yes (Life-Threatening, Hospitalization, Other)
  Sender: FDA-Public Use
  Company Number: AU-BRISTOL-MYERS SQUIBB COMPANY-BMS-2020-009075

PATIENT
  Age: 73 Year
  Sex: Male
  Weight: 103 kg

DRUGS (17)
  1. IPILIMUMAB [Suspect]
     Active Substance: IPILIMUMAB
     Indication: Metastatic renal cell carcinoma
     Route: 042
     Dates: start: 20191216, end: 20200130
  2. CABOZANTINIB [Suspect]
     Active Substance: CABOZANTINIB
     Indication: Metastatic renal cell carcinoma
     Route: 048
     Dates: start: 20191216, end: 20200130
  3. CRESTOR [Concomitant]
     Active Substance: ROSUVASTATIN CALCIUM
     Indication: Product used for unknown indication
     Route: 065
  4. CANDESARTAN AN [Concomitant]
     Indication: Product used for unknown indication
     Route: 065
  5. OXYCODONE HYDROCHLORIDE [Concomitant]
     Active Substance: OXYCODONE HYDROCHLORIDE
     Indication: Product used for unknown indication
     Route: 065
  6. NALOXONE HYDROCHLORIDE\OXYCODONE HYDROCHLORIDE [Concomitant]
     Active Substance: NALOXONE HYDROCHLORIDE\OXYCODONE HYDROCHLORIDE
     Indication: Product used for unknown indication
     Route: 065
  7. LORATADINE [Concomitant]
     Active Substance: LORATADINE
     Indication: Product used for unknown indication
     Route: 065
  8. HYDROCORTISONE [Concomitant]
     Active Substance: HYDROCORTISONE
     Indication: Product used for unknown indication
     Route: 065
  9. HYDROCORTISONE [Concomitant]
     Active Substance: HYDROCORTISONE
     Dosage: UNK
     Route: 065
  10. ACETAMINOPHEN [Concomitant]
     Active Substance: ACETAMINOPHEN
     Indication: Product used for unknown indication
  11. PREDNISOLONE [Concomitant]
     Active Substance: PREDNISOLONE
     Indication: Product used for unknown indication
     Route: 065
  12. DAPSONE [Concomitant]
     Active Substance: DAPSONE
     Indication: Product used for unknown indication
     Route: 065
  13. FUROSEMIDE [Concomitant]
     Active Substance: FUROSEMIDE
     Indication: Product used for unknown indication
     Route: 065
  14. LACTULOSE [Concomitant]
     Active Substance: LACTULOSE
     Indication: Product used for unknown indication
     Dosage: UNK
     Route: 065
  15. TEMAZEPAM [Concomitant]
     Active Substance: TEMAZEPAM
     Indication: Product used for unknown indication
     Dosage: UNK
     Route: 065
  16. CALCIUM CARBONATE [Concomitant]
     Active Substance: CALCIUM CARBONATE
     Indication: Product used for unknown indication
     Dosage: UNK
     Route: 065
  17. PANAMAX [PARACETAMOL] [Concomitant]
     Indication: Product used for unknown indication
     Dosage: UNK
     Route: 065

REACTIONS (4)
  - Immune-mediated nephritis [Not Recovered/Not Resolved]
  - Immune-mediated hepatitis [Not Recovered/Not Resolved]
  - Thrombocytopenia [Not Recovered/Not Resolved]
  - Haemolysis [Recovering/Resolving]

NARRATIVE: CASE EVENT DATE: 20200127
